FAERS Safety Report 6781088-X (Version None)
Quarter: 2010Q2

REPORT INFORMATION
  Report Type: 
  Country: None (occurrence: None)
  Receive Date: 20100621
  Receipt Date: 20100609
  Transmission Date: 20101027
  Serious: Yes (Other)
  Sender: FDA-Public Use
  Company Number: ZA-SANOFI-AVENTIS-2010SA033385

PATIENT
  Sex: Female

DRUGS (2)
  1. KETEK [Suspect]
  2. AVELON [Suspect]

REACTIONS (1)
  - DEAFNESS NEUROSENSORY [None]
